FAERS Safety Report 25738614 (Version 1)
Quarter: 2025Q3

REPORT INFORMATION
  Report Type: Spontaneous
  Country: US (occurrence: US)
  Receive Date: 20250829
  Receipt Date: 20250829
  Transmission Date: 20251021
  Serious: No
  Sender: MDD OPERATIONS
  Company Number: US-MDD US Operations-MDD202505-001719

PATIENT
  Age: 77 Year
  Sex: Female

DRUGS (3)
  1. ONAPGO [Suspect]
     Active Substance: APOMORPHINE HYDROCHLORIDE
     Indication: Parkinson^s disease
     Dates: start: 20250512
  2. ONAPGO [Suspect]
     Active Substance: APOMORPHINE HYDROCHLORIDE
     Dates: start: 20250521
  3. SINEMET [Concomitant]
     Active Substance: CARBIDOPA\LEVODOPA

REACTIONS (11)
  - Rhinorrhoea [Unknown]
  - Anxiety [Recovered/Resolved]
  - On and off phenomenon [Recovered/Resolved]
  - Anosmia [Recovered/Resolved]
  - Hypogeusia [Recovered/Resolved]
  - Oropharyngeal discomfort [Recovered/Resolved]
  - Dyskinesia [Not Recovered/Not Resolved]
  - Headache [Unknown]
  - Nausea [Unknown]
  - Product dose omission in error [Unknown]
  - Device use issue [Unknown]

NARRATIVE: CASE EVENT DATE: 20250501
